FAERS Safety Report 11476892 (Version 1)
Quarter: 2015Q3

REPORT INFORMATION
  Report Type: Spontaneous
  Country: US (occurrence: US)
  Receive Date: 20150909
  Receipt Date: 20150909
  Transmission Date: 20151125
  Serious: No
  Sender: FDA-Public Use
  Company Number: US-JAZZ-2014-US-010762

PATIENT
  Sex: Male

DRUGS (5)
  1. XYREM [Suspect]
     Active Substance: SODIUM OXYBATE
     Indication: MYOCLONUS
     Dosage: 1 G, BID
     Route: 048
     Dates: start: 201311, end: 201311
  2. XYREM [Suspect]
     Active Substance: SODIUM OXYBATE
     Dosage: 1.5 G, THIRD DOSE AT LATE AFTERNOON
     Route: 048
     Dates: start: 201401
  3. XYREM [Suspect]
     Active Substance: SODIUM OXYBATE
     Dosage: 1.5 G, FIRST DOSE IN THE MORNING
     Dates: start: 201401
  4. XYREM [Suspect]
     Active Substance: SODIUM OXYBATE
     Dosage: 1 G, TID
     Route: 048
     Dates: start: 201311, end: 2013
  5. XYREM [Suspect]
     Active Substance: SODIUM OXYBATE
     Dosage: 2 G, SECOND DOSE AT MIDDAY
     Dates: start: 201401

REACTIONS (2)
  - Unevaluable event [Unknown]
  - Product use issue [Unknown]
